FAERS Safety Report 5960694-6 (Version None)
Quarter: 2008Q4

REPORT INFORMATION
  Report Type: 
  Country: None (occurrence: None)
  Receive Date: 20081120
  Receipt Date: 20081113
  Transmission Date: 20090506
  Serious: Yes (Other)
  Sender: FDA-Public Use
  Company Number: FR-PFIZER INC-2008086834

PATIENT
  Sex: Female

DRUGS (4)
  1. SALAZOPYRINE [Suspect]
     Indication: ANKYLOSING SPONDYLITIS
     Dates: start: 20080916
  2. NAPROXEN SODIUM [Concomitant]
  3. CORTANCYL [Concomitant]
  4. DI-ANTALVIC [Concomitant]

REACTIONS (2)
  - CYTOLYTIC HEPATITIS [None]
  - TOXIC SKIN ERUPTION [None]
